FAERS Safety Report 20253812 (Version 2)
Quarter: 2023Q1

REPORT INFORMATION
  Report Type: Spontaneous
  Country: US (occurrence: US)
  Receive Date: 20211230
  Receipt Date: 20230106
  Transmission Date: 20230418
  Serious: Yes (Other)
  Sender: FDA-Public Use
  Company Number: US-COOPERSURGICAL, INC.-US-2021CPS003327

PATIENT

DRUGS (1)
  1. PARAGARD T 380A [Suspect]
     Active Substance: COPPER
     Indication: Contraception
     Dosage: UNK
     Route: 015
     Dates: start: 20200218, end: 20210809

REACTIONS (7)
  - Pregnancy with contraceptive device [Recovered/Resolved]
  - Complication of device removal [Recovered/Resolved]
  - Bacterial vaginosis [Unknown]
  - Menstruation irregular [Unknown]
  - Device expulsion [Recovered/Resolved]
  - Hypomenorrhoea [Unknown]
  - Drug ineffective [Unknown]

NARRATIVE: CASE EVENT DATE: 20200401
